FAERS Safety Report 21261350 (Version 1)
Quarter: 2022Q3

REPORT INFORMATION
  Report Type: Spontaneous
  Country: CN (occurrence: CN)
  Receive Date: 20220827
  Receipt Date: 20220827
  Transmission Date: 20221027
  Serious: Yes (Other)
  Sender: FDA-Public Use
  Company Number: CN-MEDICUREINC-2022CNLIT00047

PATIENT

DRUGS (1)
  1. AGGRASTAT [Suspect]
     Active Substance: TIROFIBAN HYDROCHLORIDE
     Indication: Ischaemic stroke
     Route: 042

REACTIONS (1)
  - Acute respiratory failure [Unknown]
